FAERS Safety Report 8241580-8 (Version None)
Quarter: 2012Q1

REPORT INFORMATION
  Report Type: 
  Country: None (occurrence: None)
  Receive Date: 20120328
  Receipt Date: 20120316
  Transmission Date: 20120608
  Serious: Yes (Other)
  Sender: FDA-Public Use
  Company Number: US-PFIZER INC-2012069938

PATIENT
  Sex: Female

DRUGS (1)
  1. LYRICA [Suspect]
     Indication: TRIGEMINAL NEURALGIA
     Dosage: 25MG IN THE MORNING, 25MG IN THE AFTERNOON AND 50MG IN THE EVENING
     Route: 048
     Dates: start: 20110401

REACTIONS (8)
  - MANIA [None]
  - FEELING ABNORMAL [None]
  - NERVE COMPRESSION [None]
  - FRUSTRATION [None]
  - EMOTIONAL DISTRESS [None]
  - MALAISE [None]
  - SWELLING FACE [None]
  - FATIGUE [None]
